FAERS Safety Report 7131234-3 (Version None)
Quarter: 2010Q4

REPORT INFORMATION
  Report Type: 
  Country: None (occurrence: None)
  Receive Date: 20101201
  Receipt Date: 20101126
  Transmission Date: 20110411
  Serious: Yes (Other)
  Sender: FDA-Public Use
  Company Number: NL-BRISTOL-MYERS SQUIBB COMPANY-15398944

PATIENT
  Age: 5 Decade
  Sex: Male

DRUGS (3)
  1. PRAVASTATIN SODIUM [Suspect]
     Indication: TYPE IIA HYPERLIPIDAEMIA
  2. NAPROXEN [Concomitant]
  3. MELOXICAM [Concomitant]

REACTIONS (1)
  - TENDONITIS [None]
